FAERS Safety Report 25915409 (Version 1)
Quarter: 2025Q4

REPORT INFORMATION
  Report Type: Report from Study
  Country: BR (occurrence: BR)
  Receive Date: 20251013
  Receipt Date: 20251013
  Transmission Date: 20260118
  Serious: Yes (Other)
  Sender: ELI LILLY AND COMPANY
  Company Number: BR-Merck Healthcare KGaA-2025049650

PATIENT
  Age: 49 Year
  Sex: Female

DRUGS (5)
  1. CETUXIMAB [Suspect]
     Active Substance: CETUXIMAB
     Indication: Rectal cancer metastatic
     Dosage: 500 MG/M2, 2/M
     Route: 042
     Dates: start: 20250521
  2. IRINOTECAN [Suspect]
     Active Substance: IRINOTECAN
     Indication: Rectal cancer metastatic
     Dosage: 180 MG/M2, UNK
     Route: 065
  3. LEUCOVORIN CALCIUM [Suspect]
     Active Substance: LEUCOVORIN CALCIUM
     Indication: Rectal cancer metastatic
     Dosage: 400 MG/M2, 2/M
     Route: 065
  4. FLUOROURACIL [Suspect]
     Active Substance: FLUOROURACIL
     Indication: Rectal cancer metastatic
     Dosage: 2400 MG/M2, 2/M
     Route: 065
  5. FLUOROURACIL [Suspect]
     Active Substance: FLUOROURACIL
     Dosage: 400 MG/M2, 2/M
     Route: 065

REACTIONS (1)
  - Immunodeficiency [Unknown]

NARRATIVE: CASE EVENT DATE: 20250923
